FAERS Safety Report 5817469-8 (Version None)
Quarter: 2008Q3

REPORT INFORMATION
  Report Type: 
  Country: None (occurrence: None)
  Receive Date: 20080715
  Receipt Date: 20080710
  Transmission Date: 20090109
  Serious: Yes (Death, Hospitalization)
  Sender: FDA-Public Use
  Company Number: 2008-02506

PATIENT
  Age: 76 Year
  Sex: Female

DRUGS (2)
  1. VELCADE [Suspect]
     Indication: NEOPLASM MALIGNANT
     Dosage: 2.1 MG,
     Dates: start: 20050117, end: 20051024
  2. DEXACORTAL(DEXAMETHASONE) [Suspect]
     Indication: NEOPLASM MALIGNANT
     Dosage: 40 MG, ORAL
     Route: 048
     Dates: start: 20050117, end: 20051024

REACTIONS (3)
  - HERPES ZOSTER [None]
  - NEURALGIA [None]
  - NEUROPATHY PERIPHERAL [None]
